FAERS Safety Report 5908436-4 (Version None)
Quarter: 2008Q3

REPORT INFORMATION
  Report Type: 
  Country: None (occurrence: None)
  Receive Date: 20080930
  Receipt Date: 20080915
  Transmission Date: 20090109
  Serious: Yes (Hospitalization, Other)
  Sender: FDA-Public Use
  Company Number: 2008BI024291

PATIENT
  Age: 61 Year
  Sex: Female
  Weight: 93.441 kg

DRUGS (16)
  1. TYSABRI [Suspect]
     Indication: MULTIPLE SCLEROSIS
     Dosage: 300 MG; QM; IV
     Route: 042
     Dates: start: 20080411, end: 20080611
  2. XANAX [Concomitant]
  3. ELAVIL [Concomitant]
  4. BACLOFEN [Concomitant]
  5. INSULIN [Concomitant]
  6. SENOKOT [Concomitant]
  7. LOVENOX [Concomitant]
  8. PEPCID [Concomitant]
  9. SYNTHROID [Concomitant]
  10. CYTOMEL [Concomitant]
  11. METFORMIN HCL [Concomitant]
  12. PROVIGIL [Concomitant]
  13. PAXIL [Concomitant]
  14. JANUVIA [Concomitant]
  15. MULTI-VITAMIN [Concomitant]
  16. REBIF [Concomitant]

REACTIONS (25)
  - ALBUMIN GLOBULIN RATIO INCREASED [None]
  - ARTERIOSCLEROSIS [None]
  - ASTHENIA [None]
  - BALANCE DISORDER [None]
  - BLOOD PRESSURE INCREASED [None]
  - DIABETIC NEUROPATHY [None]
  - DISEASE PROGRESSION [None]
  - EYE PAIN [None]
  - GLOBULINS DECREASED [None]
  - HAEMATOCRIT DECREASED [None]
  - HAEMODIALYSIS [None]
  - HAEMOGLOBIN DECREASED [None]
  - HYPERGLYCAEMIA [None]
  - HYPOAESTHESIA [None]
  - MULTIPLE SCLEROSIS [None]
  - MYELITIS TRANSVERSE [None]
  - NEUROMYELITIS OPTICA [None]
  - OPTIC NEURITIS [None]
  - PARAESTHESIA [None]
  - PROTEIN TOTAL DECREASED [None]
  - RED BLOOD CELL COUNT DECREASED [None]
  - SCOTOMA [None]
  - URINARY TRACT INFECTION [None]
  - URINE ANALYSIS ABNORMAL [None]
  - VISUAL IMPAIRMENT [None]
